FAERS Safety Report 10595197 (Version 1)
Quarter: 2014Q4

REPORT INFORMATION
  Report Type: Not Available
  Country: US (occurrence: US)
  Receive Date: 20141120
  Receipt Date: 20141120
  Transmission Date: 20150529
  Serious: Yes (Other)
  Sender: FDA-Public Use
  Company Number: US-LUPIN PHARMACEUTICALS INC.-E2B_00001421

PATIENT
  Age: 67 Year
  Sex: Female
  Weight: 56.75 kg

DRUGS (1)
  1. LOSARTAN POTASSIUM TABLETS USP 25 MG [Suspect]
     Active Substance: LOSARTAN POTASSIUM
     Indication: HYPERTENSION
     Dates: start: 20131029, end: 20131104

REACTIONS (4)
  - Drug ineffective [Unknown]
  - Frequent bowel movements [Unknown]
  - Hypertension [Not Recovered/Not Resolved]
  - Dizziness [Recovered/Resolved]

NARRATIVE: CASE EVENT DATE: 20131103
